FAERS Safety Report 24071152 (Version 1)
Quarter: 2024Q3

REPORT INFORMATION
  Report Type: Report from Study
  Country: DE (occurrence: DE)
  Receive Date: 20240710
  Receipt Date: 20240710
  Transmission Date: 20241017
  Serious: No
  Sender: ROCHE
  Company Number: DE-ROCHE-3292068

PATIENT
  Age: 43 Year
  Sex: Female
  Weight: 43.0 kg

DRUGS (6)
  1. EVRYSDI [Suspect]
     Active Substance: RISDIPLAM
     Indication: Spinal muscular atrophy
     Dosage: ON 30/JAN/2023, 18/JUL/2023, 13/NOV/2023, 13/FEB/2024 SHE RECEIVED LAST DOSE OF RISDIPLAM.
     Route: 048
     Dates: start: 20210519
  2. CANDESARTAN [Concomitant]
     Active Substance: CANDESARTAN
     Dates: start: 20120101
  3. FLUTICASONE\FORMOTEROL [Concomitant]
     Active Substance: FLUTICASONE\FORMOTEROL
     Dates: start: 20240101
  4. DIETHYLSTILBESTROL [Concomitant]
     Active Substance: DIETHYLSTILBESTROL
     Dates: start: 20221101
  5. PROGESTERONE [Concomitant]
     Active Substance: PROGESTERONE
     Dates: start: 20221101
  6. DYDROGESTERONE [Concomitant]
     Active Substance: DYDROGESTERONE
     Dates: start: 20221101

REACTIONS (11)
  - Diarrhoea [Recovered/Resolved]
  - Headache [Recovered/Resolved]
  - Respiratory tract infection [Recovered/Resolved]
  - SARS-CoV-2 test positive [Recovered/Resolved]
  - Bronchitis [Recovered/Resolved]
  - Abortion [Unknown]
  - Maternal exposure timing unspecified [Unknown]
  - Gastritis [Recovered/Resolved]
  - Nausea [Recovered/Resolved]
  - Nasopharyngitis [Recovered/Resolved]
  - Pyrexia [Recovered/Resolved]

NARRATIVE: CASE EVENT DATE: 20220411
